FAERS Safety Report 10139760 (Version 4)
Quarter: 2015Q1

REPORT INFORMATION
  Report Type: Spontaneous
  Country: IT (occurrence: IT)
  Receive Date: 20140429
  Receipt Date: 20150122
  Transmission Date: 20150720
  Serious: Yes (Other)
  Sender: FDA-Public Use
  Company Number: IT-SA-2014SA052185

PATIENT
  Age: 78 Year
  Sex: Male

DRUGS (9)
  1. TOP-NITRO [Concomitant]
     Active Substance: NITROGLYCERIN
  2. EPREX [Concomitant]
     Active Substance: ERYTHROPOIETIN
  3. LANSOX [Concomitant]
     Active Substance: LANSOPRAZOLE
  4. REPAGLINIDE. [Suspect]
     Active Substance: REPAGLINIDE
     Indication: DIABETES MELLITUS
     Route: 048
     Dates: start: 20140110, end: 20140115
  5. LASIX [Suspect]
     Active Substance: FUROSEMIDE
     Indication: CARDIAC FAILURE
     Dosage: STRENGTH: 500 MG
     Route: 048
     Dates: start: 20140103, end: 20140113
  6. IPRATROPIUM BROMIDE. [Concomitant]
     Active Substance: IPRATROPIUM BROMIDE
  7. ZAROXOLYN [Suspect]
     Active Substance: METOLAZONE
     Indication: CARDIAC FAILURE
     Route: 048
     Dates: start: 20140111, end: 20140113
  8. LUVION [Suspect]
     Active Substance: CANRENONE
     Indication: PRODUCT USED FOR UNKNOWN INDICATION
     Route: 048
     Dates: start: 20140103, end: 20140115
  9. ISOCOLAN [Suspect]
     Active Substance: ELECTROLYTES NOS\POLYETHYLENE GLYCOL 4000
     Indication: SURGERY
     Dosage: DOSE:16 UNIT(S)
     Route: 048
     Dates: start: 20140113, end: 20140113

REACTIONS (2)
  - Blood creatinine increased [Recovered/Resolved]
  - Chronic kidney disease [Recovered/Resolved]

NARRATIVE: CASE EVENT DATE: 20140116
